FAERS Safety Report 13299622 (Version 2)
Quarter: 2017Q1

REPORT INFORMATION
  Report Type: Spontaneous
  Country: IN (occurrence: IN)
  Receive Date: 20170306
  Receipt Date: 20170328
  Transmission Date: 20170428
  Serious: Yes (Other)
  Sender: FDA-Public Use
  Company Number: IN-GE HEALTHCARE LIFE SCIENCES-2017CSU000173

PATIENT

DRUGS (2)
  1. ANTIEPILEPTICS [Concomitant]
     Active Substance: UNSPECIFIED INGREDIENT
  2. OMNISCAN [Suspect]
     Active Substance: GADODIAMIDE
     Indication: NEUROCYSTICERCOSIS
     Dosage: 8 ML, SINGLE
     Route: 042
     Dates: start: 20170223, end: 20170223

REACTIONS (3)
  - Hypotension [Recovered/Resolved]
  - Rash [Recovered/Resolved]
  - Vomiting [Recovered/Resolved]

NARRATIVE: CASE EVENT DATE: 20170223
